FAERS Safety Report 10240690 (Version 1)
Quarter: 2014Q2

REPORT INFORMATION
  Report Type: Spontaneous
  Country: US (occurrence: US)
  Receive Date: 20140617
  Receipt Date: 20140617
  Transmission Date: 20141212
  Serious: Yes (Other)
  Sender: FDA-Public Use
  Company Number: US-ASTRAZENECA-2014SE40266

PATIENT
  Age: 61 Year
  Sex: Female
  Weight: 97.5 kg

DRUGS (10)
  1. SYMBICORT [Suspect]
     Indication: ASTHMA
     Dosage: 160/4.5, 2 PUFFS BID
     Route: 055
     Dates: end: 2012
  2. SYMBICORT [Suspect]
     Indication: ASTHMA
     Dosage: FREQUENCY UNKNWON
     Route: 055
  3. CRESTOR [Suspect]
     Indication: BLOOD CHOLESTEROL INCREASED
     Route: 048
     Dates: start: 2009, end: 2012
  4. LEVOTHYROXINE [Concomitant]
     Indication: THYROID DISORDER
     Route: 048
     Dates: start: 2010
  5. HYDROCHLOROT [Concomitant]
     Indication: HYPERTENSION
     Route: 048
     Dates: start: 2011
  6. HYDROCHLOROT [Concomitant]
     Indication: HYPERTENSION
     Dosage: GENERIC
  7. ATORVASTATIN [Concomitant]
     Dosage: ONCE A WEEK
     Dates: start: 20140306
  8. ATORVASTATIN [Concomitant]
     Dosage: EVERY DAY
  9. GENERIC INHALER [Concomitant]
     Dates: start: 2012
  10. SYNTHROID [Concomitant]
     Dates: start: 1994, end: 2010

REACTIONS (3)
  - Thrombosis [Unknown]
  - Limb injury [Unknown]
  - Intentional product misuse [Unknown]
